FAERS Safety Report 24773137 (Version 1)
Quarter: 2024Q4

REPORT INFORMATION
  Report Type: Spontaneous
  Country: FR (occurrence: FR)
  Receive Date: 20241225
  Receipt Date: 20241225
  Transmission Date: 20250115
  Serious: Yes (Hospitalization, Other)
  Sender: AUROBINDO
  Company Number: FR-AFSSAPS-NY2024001466

PATIENT
  Age: 34 Year
  Sex: Female
  Weight: 68 kg

DRUGS (12)
  1. CIMETIDINE [Suspect]
     Active Substance: CIMETIDINE
     Indication: Postpartum haemorrhage
     Dosage: 400 MILLIGRAM, ONCE A DAY
     Route: 048
     Dates: start: 20241203, end: 20241203
  2. DROPERIDOL [Suspect]
     Active Substance: DROPERIDOL
     Indication: Procedural nausea
     Dosage: 625 MICROGRAM, ONCE A DAY
     Route: 042
     Dates: start: 20241203, end: 20241203
  3. KETOPROFEN [Suspect]
     Active Substance: KETOPROFEN
     Indication: Pain
     Dosage: 100 MILLIGRAM, ONCE A DAY
     Route: 042
     Dates: start: 20241203, end: 20241203
  4. LIDOCAINE [Suspect]
     Active Substance: LIDOCAINE
     Indication: Epidural anaesthesia
     Dosage: 2 MILLIGRAM, ONCE A DAY
     Route: 008
     Dates: start: 20241203, end: 20241203
  5. ACETAMINOPHEN [Suspect]
     Active Substance: ACETAMINOPHEN
     Indication: Pain
     Dosage: 1000 MILLIGRAM, ONCE A DAY
     Route: 042
     Dates: start: 20241203
  6. TRANEXAMIC ACID [Suspect]
     Active Substance: TRANEXAMIC ACID
     Indication: Postpartum haemorrhage
     Dosage: 1000 MILLIGRAM, ONCE A DAY
     Route: 042
     Dates: start: 20241203, end: 20241203
  7. CLOTTAFACT [Suspect]
     Active Substance: FIBRINOGEN HUMAN
     Indication: Postpartum haemorrhage
     Dosage: 4500 MILLIGRAM, ONCE A DAY,
     Route: 042
     Dates: start: 20241203, end: 20241203
  8. CEFAZOLIN SODIUM [Suspect]
     Active Substance: CEFAZOLIN SODIUM
     Indication: Antibiotic prophylaxis
     Dosage: 2000 MILLIGRAM, ONCE A DAY
     Route: 042
     Dates: start: 20241203, end: 20241203
  9. CARBETOCIN [Suspect]
     Active Substance: CARBETOCIN
     Indication: Haemorrhage prophylaxis
     Dosage: 100 MICROGRAM, ONCE A DAY
     Route: 042
     Dates: start: 20241203, end: 20241203
  10. NOREPINEPHRINE [Suspect]
     Active Substance: NOREPINEPHRINE\NOREPINEPHRINE BITARTRATE
     Indication: Shock haemorrhagic
     Dosage: 230 MICROGRAM, ONCE A DAY
     Route: 042
     Dates: start: 20241203, end: 20241203
  11. SULPROSTONE [Suspect]
     Active Substance: SULPROSTONE
     Indication: Postpartum haemorrhage
     Dosage: 835 MICROGRAM, ONCE A DAY
     Route: 042
     Dates: start: 20241203, end: 20241203
  12. MORPHINE [Suspect]
     Active Substance: MORPHINE
     Indication: Epidural anaesthesia
     Dosage: 200 MILLIGRAM, ONCE A DAY
     Route: 008
     Dates: start: 20241203, end: 20241203

REACTIONS (1)
  - Renal cortical necrosis [Not Recovered/Not Resolved]

NARRATIVE: CASE EVENT DATE: 20241204
